FAERS Safety Report 5733584-1 (Version None)
Quarter: 2008Q2

REPORT INFORMATION
  Report Type: 
  Country: None (occurrence: None)
  Receive Date: 20080509
  Receipt Date: 20080429
  Transmission Date: 20081010
  Serious: Yes (Hospitalization)
  Sender: FDA-Public Use
  Company Number: BE-JNJFOC-20080205988

PATIENT
  Age: 12 Month
  Sex: Male

DRUGS (2)
  1. MICONAZOLE NITRATE [Suspect]
     Route: 048
  2. MICONAZOLE NITRATE [Suspect]
     Indication: MALABSORPTION
     Route: 048

REACTIONS (2)
  - COUGH [None]
  - DYSPNOEA [None]
